FAERS Safety Report 16259086 (Version 3)
Quarter: 2019Q3

REPORT INFORMATION
  Report Type: Report from Study
  Country: None (occurrence: BR)
  Receive Date: 20190501
  Receipt Date: 20190727
  Transmission Date: 20191004
  Serious: Yes (Other)
  Sender: FDA-Public Use
  Company Number: BR-ABBVIE-19K-020-2759527-00

PATIENT
  Sex: Male
  Weight: 125 kg

DRUGS (1)
  1. HUMIRA [Suspect]
     Active Substance: ADALIMUMAB
     Indication: COLITIS ULCERATIVE
     Route: 058
     Dates: start: 201806

REACTIONS (7)
  - Complicated appendicitis [Recovered/Resolved]
  - Bed rest [Recovered/Resolved]
  - Back pain [Recovered/Resolved]
  - Abdominal adhesions [Recovered/Resolved]
  - Retching [Recovered/Resolved]
  - Colitis ulcerative [Unknown]
  - Appendicitis [Recovered/Resolved]

NARRATIVE: CASE EVENT DATE: 20190401
